FAERS Safety Report 11871182 (Version 2)
Quarter: 2016Q2

REPORT INFORMATION
  Report Type: Spontaneous
  Country: FR (occurrence: FR)
  Receive Date: 20151228
  Receipt Date: 20160606
  Transmission Date: 20160815
  Serious: Yes (Hospitalization, Other)
  Sender: FDA-Public Use
  Company Number: FR-JNJFOC-20151219045

PATIENT
  Age: 64 Year
  Sex: Male
  Weight: 85 kg

DRUGS (13)
  1. MECIR [Concomitant]
     Active Substance: TAMSULOSIN HYDROCHLORIDE
     Route: 065
  2. ANAFRANIL [Concomitant]
     Active Substance: CLOMIPRAMINE HYDROCHLORIDE
     Route: 065
  3. ISENTRESS [Suspect]
     Active Substance: RALTEGRAVIR POTASSIUM
     Indication: HIV INFECTION
     Route: 065
     Dates: start: 20090920, end: 20141112
  4. ISENTRESS [Suspect]
     Active Substance: RALTEGRAVIR POTASSIUM
     Indication: HIV INFECTION
     Route: 065
     Dates: start: 20090930
  5. ZYLORIC [Concomitant]
     Active Substance: ALLOPURINOL
     Route: 065
  6. TIVICAY [Suspect]
     Active Substance: DOLUTEGRAVIR SODIUM
     Indication: HIV INFECTION
     Route: 065
     Dates: start: 20141112, end: 20150625
  7. EZETROL [Concomitant]
     Active Substance: EZETIMIBE
     Route: 065
  8. OMACOR [Concomitant]
     Active Substance: OMEGA-3-ACID ETHYL ESTERS
     Route: 065
  9. BISOPROLOL [Concomitant]
     Active Substance: BISOPROLOL
     Route: 065
  10. LYRICA [Concomitant]
     Active Substance: PREGABALIN
     Route: 065
  11. EDURANT [Concomitant]
     Active Substance: RILPIVIRINE HYDROCHLORIDE
     Route: 065
     Dates: start: 20141112
  12. INTELENCE [Suspect]
     Active Substance: ETRAVIRINE
     Indication: HIV INFECTION
     Route: 048
     Dates: start: 20090930, end: 20141112
  13. MOPRAL [Concomitant]
     Active Substance: OMEPRAZOLE SODIUM
     Route: 065

REACTIONS (6)
  - Balance disorder [Recovered/Resolved]
  - Peripheral swelling [Recovered/Resolved]
  - Back pain [Recovering/Resolving]
  - Oedema peripheral [Recovered/Resolved]
  - Arthralgia [Recovering/Resolving]
  - Sciatica [Unknown]

NARRATIVE: CASE EVENT DATE: 201407
